FAERS Safety Report 11988083 (Version 1)
Quarter: 2016Q1

REPORT INFORMATION
  Report Type: Spontaneous
  Country: GB (occurrence: GB)
  Receive Date: 20160202
  Receipt Date: 20160202
  Transmission Date: 20160526
  Serious: Yes (Other)
  Sender: FDA-Public Use
  Company Number: GB-WATSON-2016-01599

PATIENT
  Age: 21 Year
  Sex: Female
  Weight: 57.6 kg

DRUGS (3)
  1. MIRTAZAPINE (UNKNOWN) [Suspect]
     Active Substance: MIRTAZAPINE
     Indication: ANXIETY
     Dosage: 45 MG, UNKNOWN
     Route: 048
     Dates: start: 20120615, end: 20160116
  2. BUCCASTEM [Concomitant]
     Indication: PRODUCT USED FOR UNKNOWN INDICATION
     Dosage: UNK
     Route: 065
  3. COCODAMOL [Concomitant]
     Active Substance: ACETAMINOPHEN\CODEINE PHOSPHATE
     Indication: PRODUCT USED FOR UNKNOWN INDICATION
     Dosage: UNK
     Route: 065

REACTIONS (2)
  - Dizziness exertional [Unknown]
  - Dizziness postural [Unknown]

NARRATIVE: CASE EVENT DATE: 20120615
